FAERS Safety Report 25200001 (Version 2)
Quarter: 2025Q2

REPORT INFORMATION
  Report Type: Spontaneous
  Country: US (occurrence: US)
  Receive Date: 20250415
  Receipt Date: 20250515
  Transmission Date: 20250717
  Serious: No
  Sender: SANOFI AVENTIS
  Company Number: US-SA-2025SA106908

PATIENT
  Age: 54 Year
  Sex: Female
  Weight: 88.64 kg

DRUGS (1)
  1. DUPIXENT [Suspect]
     Active Substance: DUPILUMAB
     Indication: Dermatitis atopic
     Dosage: 300 MG, QOW
     Route: 058
     Dates: start: 20250317

REACTIONS (4)
  - Illness [Unknown]
  - Pyrexia [Unknown]
  - Injection site pain [Unknown]
  - Eczema [Unknown]

NARRATIVE: CASE EVENT DATE: 20250101
